FAERS Safety Report 5646809-8 (Version None)
Quarter: 2008Q1

REPORT INFORMATION
  Report Type: 
  Country: None (occurrence: None)
  Receive Date: 20080229
  Receipt Date: 20080229
  Transmission Date: 20080703
  Serious: Yes (Other)
  Sender: FDA-Public Use
  Company Number: None

PATIENT
  Age: 60 Year
  Sex: Male
  Weight: 127.0072 kg

DRUGS (2)
  1. ROUND OFF-WHITE WPT 3332 BUPROPION XL [Suspect]
     Indication: ATTENTION DEFICIT/HYPERACTIVITY DISORDER
     Dosage: 300 MG 1 PILL DAILY PO
     Route: 048
     Dates: start: 20080120, end: 20080228
  2. ROUND OFF-WHITE WPT 3332 BUPROPION XL [Suspect]
     Indication: DEPRESSION
     Dosage: 300 MG 1 PILL DAILY PO
     Route: 048
     Dates: start: 20080120, end: 20080228

REACTIONS (9)
  - ASTHENIA [None]
  - DISTURBANCE IN ATTENTION [None]
  - DRUG INEFFECTIVE [None]
  - HEADACHE [None]
  - INSOMNIA [None]
  - IRRITABILITY [None]
  - PHARMACEUTICAL PRODUCT COMPLAINT [None]
  - THERAPEUTIC RESPONSE UNEXPECTED WITH DRUG SUBSTITUTION [None]
  - WEIGHT INCREASED [None]
